FAERS Safety Report 5973397-9 (Version None)
Quarter: 2008Q4

REPORT INFORMATION
  Report Type: 
  Country: None (occurrence: None)
  Receive Date: 20081201
  Receipt Date: 20081119
  Transmission Date: 20090506
  Serious: Yes (Hospitalization, Other)
  Sender: FDA-Public Use
  Company Number: PHHO2007JP07356

PATIENT
  Sex: Male
  Weight: 63 kg

DRUGS (33)
  1. TASIGNA [Suspect]
     Indication: CHRONIC MYELOID LEUKAEMIA
     Dosage: 800MG DAILY
     Route: 048
     Dates: start: 20060913, end: 20070711
  2. TASIGNA [Suspect]
     Dosage: NO TREATMENT
     Dates: start: 20070712, end: 20070722
  3. TASIGNA [Suspect]
     Dosage: 400MG DAILY
     Route: 048
     Dates: start: 20070723, end: 20070926
  4. TASIGNA [Suspect]
     Dosage: NO TREATMENT
     Dates: start: 20070927, end: 20071009
  5. TASIGNA [Suspect]
     Dosage: 800MG DAILY
     Route: 048
     Dates: start: 20071010, end: 20080109
  6. TASIGNA [Suspect]
     Dosage: NO TREATMENT
     Dates: start: 20080110, end: 20080122
  7. TASIGNA [Suspect]
     Dosage: 400 MG
     Route: 048
     Dates: start: 20080123, end: 20080123
  8. TASIGNA [Suspect]
     Dosage: 800 MG
     Dates: start: 20080124, end: 20080303
  9. TASIGNA [Suspect]
     Dosage: 400 MG
     Route: 048
     Dates: start: 20080304, end: 20080304
  10. TASIGNA [Suspect]
     Dosage: NO TREATMENT
     Dates: start: 20080305, end: 20080318
  11. TASIGNA [Suspect]
     Dosage: 400 MG
     Dates: start: 20080319, end: 20080430
  12. TASIGNA [Suspect]
     Dosage: NO TREATMENT
     Dates: start: 20080501, end: 20080512
  13. TASIGNA [Suspect]
     Dosage: 400 MG
     Dates: start: 20080513, end: 20080529
  14. TASIGNA [Suspect]
     Dosage: UNK
  15. ASPIRIN [Suspect]
     Route: 048
     Dates: start: 20080111, end: 20080205
  16. ASPIRIN [Suspect]
     Dosage: 100 MG, BID
     Route: 048
     Dates: start: 20080206, end: 20080307
  17. ASPIRIN [Suspect]
     Route: 048
     Dates: start: 20080312
  18. PLAVIX [Suspect]
     Indication: PROPHYLAXIS
     Dosage: 75 MG, QD
     Route: 048
     Dates: start: 20080117, end: 20080307
  19. SODIUM HYALURONATE [Concomitant]
     Indication: DRY EYE
  20. MUCOSTA [Concomitant]
     Indication: PROPHYLAXIS
  21. AMOBAN [Concomitant]
     Indication: INSOMNIA
  22. GATIFLOXACIN [Concomitant]
     Dates: start: 20071116
  23. HIRUDOID [Concomitant]
     Dates: start: 20080129
  24. ACTOSIN [Concomitant]
     Dates: start: 20080206
  25. NIZORAL [Concomitant]
     Dates: start: 20080221
  26. ZEFNART [Concomitant]
     Dates: start: 20080221
  27. MEVALOTIN [Concomitant]
     Dates: start: 20080116, end: 20080307
  28. MIYA-BM [Concomitant]
     Dates: start: 20080116, end: 20080307
  29. ALOSENN [Concomitant]
     Dates: start: 20070912, end: 20080307
  30. CYANOCOBALAMIN [Concomitant]
     Dates: start: 20080202, end: 20080307
  31. BENZYDAMINE [Concomitant]
     Dates: end: 20080307
  32. FRANDOL [Concomitant]
     Dates: start: 20080306
  33. AMLODIN [Concomitant]
     Dosage: UNK
     Dates: start: 20080801

REACTIONS (13)
  - ANGINA PECTORIS [None]
  - ARTERIAL OCCLUSIVE DISEASE [None]
  - ARTERIOSCLEROSIS OBLITERANS [None]
  - BLOOD FIBRINOGEN INCREASED [None]
  - GASTROINTESTINAL HAEMORRHAGE [None]
  - GRAFT THROMBOSIS [None]
  - HYPOAESTHESIA [None]
  - INSOMNIA [None]
  - LIMB OPERATION [None]
  - MELAENA [None]
  - PAIN IN EXTREMITY [None]
  - TOE AMPUTATION [None]
  - VASCULAR GRAFT [None]
